FAERS Safety Report 9303570 (Version 2)
Quarter: 2013Q3

REPORT INFORMATION
  Report Type: Spontaneous
  Country: IT (occurrence: IT)
  Receive Date: 20130522
  Receipt Date: 20130825
  Transmission Date: 20140515
  Serious: Yes (Death, Hospitalization)
  Sender: FDA-Public Use
  Company Number: PHHY2013IT049981

PATIENT
  Sex: Female

DRUGS (2)
  1. METFORMIN [Suspect]
     Indication: DIABETES MELLITUS
     Dosage: 1500 MG, DAILY
     Route: 048
     Dates: start: 20050101
  2. DICLOFENAC [Suspect]
     Indication: BACK PAIN
     Dosage: 2 POSOLOGIC UNITS DAILY
     Route: 030
     Dates: start: 20130129, end: 20130131

REACTIONS (1)
  - Metabolic acidosis [Fatal]
